FAERS Safety Report 4764845-0 (Version None)
Quarter: 2005Q3

REPORT INFORMATION
  Report Type: 
  Country: None (occurrence: None)
  Receive Date: 20050907
  Receipt Date: 20050825
  Transmission Date: 20060218
  Serious: Yes (Death)
  Sender: FDA-Public Use
  Company Number: 200511767BWH

PATIENT

DRUGS (2)
  1. APROTININ [Suspect]
     Indication: RENAL CELL CARCINOMA STAGE UNSPECIFIED
     Dosage: INTRAVENOUS
     Route: 042
     Dates: start: 20050701
  2. APROTININ [Suspect]
     Indication: SURGERY
     Dosage: INTRAVENOUS
     Route: 042
     Dates: start: 20050701

REACTIONS (1)
  - AORTIC THROMBOSIS [None]
